FAERS Safety Report 26194686 (Version 1)
Quarter: 2025Q4

REPORT INFORMATION
  Report Type: Spontaneous
  Country: EU (occurrence: EU)
  Receive Date: 20251224
  Receipt Date: 20251224
  Transmission Date: 20260118
  Serious: Yes (Death)
  Sender: BAYER HEALTHCARE PHARMACEUTICALS INC.
  Company Number: EU-BAYER-2025A168208

PATIENT
  Age: 72 Year
  Sex: Male

DRUGS (1)
  1. ULTRAVIST [Suspect]
     Active Substance: IOPROMIDE
     Dosage: UNK UNK, ONCE
     Dates: start: 20251222, end: 20251222

REACTIONS (1)
  - Death [Fatal]

NARRATIVE: CASE EVENT DATE: 20251222
